FAERS Safety Report 18658456 (Version 1)
Quarter: 2020Q4

REPORT INFORMATION
  Report Type: Report from Study
  Country: US (occurrence: US)
  Receive Date: 20201223
  Receipt Date: 20201223
  Transmission Date: 20210114
  Serious: Yes (Hospitalization)
  Sender: FDA-Public Use
  Company Number: US-TEVA-2020-US-1860460

PATIENT
  Age: 73 Year
  Sex: Male

DRUGS (1)
  1. GEMFIBROZIL. [Suspect]
     Active Substance: GEMFIBROZIL
     Indication: HYPERLIPIDAEMIA
     Dosage: 1200 MILLIGRAM DAILY; 90 DAYS
     Route: 065

REACTIONS (2)
  - Acute kidney injury [Unknown]
  - Pancreatitis acute [Unknown]
